FAERS Safety Report 9303064 (Version 1)
Quarter: 2013Q2

REPORT INFORMATION
  Report Type: Spontaneous
  Country: US (occurrence: None)
  Receive Date: 20130521
  Receipt Date: 20130521
  Transmission Date: 20140414
  Serious: Yes (Death)
  Sender: FDA-Public Use
  Company Number: None

PATIENT
  Sex: Male

DRUGS (2)
  1. SUTENT 125MG [Suspect]
     Route: 048
     Dates: start: 201302, end: 201305
  2. SUTENT 125MG [Suspect]
     Route: 048
     Dates: start: 201302, end: 201305

REACTIONS (1)
  - Malignant neoplasm progression [None]
